FAERS Safety Report 25900483 (Version 1)
Quarter: 2025Q4

REPORT INFORMATION
  Report Type: Spontaneous
  Country: EU (occurrence: EU)
  Receive Date: 20251009
  Receipt Date: 20251009
  Transmission Date: 20260117
  Serious: Yes (Other)
  Sender: GILEAD
  Company Number: None

PATIENT
  Age: 39 Year
  Sex: Male

DRUGS (1)
  1. VIREAD [Suspect]
     Active Substance: TENOFOVIR DISOPROXIL FUMARATE
     Indication: Chronic hepatitis B
     Dosage: DOSAGE: UNKNOWN STRENGTH: UNKNOWN
     Route: 065
     Dates: start: 20090306

REACTIONS (2)
  - Osteoporosis [Unknown]
  - Osteopenia [Unknown]

NARRATIVE: CASE EVENT DATE: 20210205
